FAERS Safety Report 21883346 (Version 1)
Quarter: 2023Q1

REPORT INFORMATION
  Report Type: Other
  Country: US (occurrence: None)
  Receive Date: 20230119
  Receipt Date: 20230119
  Transmission Date: 20230418
  Serious: Yes (Hospitalization, Other)
  Sender: FDA-Public Use
  Company Number: US-ROCHE-3264541

PATIENT
  Age: 66 Year
  Sex: Female

DRUGS (3)
  1. OCREVUS [Suspect]
     Active Substance: OCRELIZUMAB
     Indication: Primary progressive multiple sclerosis
     Dosage: 300MG ON DAY 1 AND DAY 15, DOT: 13-JUL-2022, 11-JAN-2022, 05-JUL-2018. DOT: 21-JUN-2018
     Route: 042
     Dates: start: 2019
  2. BACLOFEN [Suspect]
     Active Substance: BACLOFEN
     Indication: Muscle spasticity
     Dosage: VIA IMPLANTED PUMP ;ONGOING: NO
     Route: 048
     Dates: end: 202205
  3. BACLOFEN [Suspect]
     Active Substance: BACLOFEN
     Route: 048
     Dates: start: 202209

REACTIONS (7)
  - Fall [Unknown]
  - Thrombosis [Recovered/Resolved]
  - Infection [Recovered/Resolved]
  - Hallucination [Recovered/Resolved]
  - Drug withdrawal syndrome [Recovered/Resolved]
  - Therapeutic response decreased [Not Recovered/Not Resolved]
  - Impaired healing [Recovered/Resolved]

NARRATIVE: CASE EVENT DATE: 20220501
